FAERS Safety Report 6483573-7 (Version None)
Quarter: 2009Q4

REPORT INFORMATION
  Report Type: 
  Country: None (occurrence: None)
  Receive Date: 20091208
  Receipt Date: 20091208
  Transmission Date: 20100525
  Serious: Yes (Disabling, Other)
  Sender: FDA-Public Use
  Company Number: None

PATIENT
  Age: 56 Year
  Sex: Female
  Weight: 61.2356 kg

DRUGS (1)
  1. BONIVA [Suspect]
     Indication: OSTEOPOROSIS
     Dosage: 1 PILL MONTHLY PO
     Route: 048
     Dates: start: 20090905, end: 20091106

REACTIONS (11)
  - ARTHRALGIA [None]
  - DISCOMFORT [None]
  - GAIT DISTURBANCE [None]
  - GINGIVAL SWELLING [None]
  - GINGIVITIS [None]
  - IMPAIRED WORK ABILITY [None]
  - OEDEMA PERIPHERAL [None]
  - OSTEITIS [None]
  - PAIN IN EXTREMITY [None]
  - PAIN IN JAW [None]
  - TOOTHACHE [None]
